FAERS Safety Report 7887573-1 (Version None)
Quarter: 2011Q4

REPORT INFORMATION
  Report Type: 
  Country: None (occurrence: None)
  Receive Date: 20111103
  Receipt Date: 20111024
  Transmission Date: 20120403
  Serious: No
  Sender: FDA-Public Use
  Company Number: US-BIOGENIDEC-2011BI024206

PATIENT
  Sex: Female

DRUGS (2)
  1. TYSABRI [Suspect]
     Indication: MULTIPLE SCLEROSIS
     Route: 042
     Dates: start: 20110322
  2. NUVIGIL [Concomitant]
     Indication: FATIGUE

REACTIONS (11)
  - CARPAL TUNNEL DECOMPRESSION [None]
  - SOMNOLENCE [None]
  - BALANCE DISORDER [None]
  - MEMORY IMPAIRMENT [None]
  - NAUSEA [None]
  - FATIGUE [None]
  - PROGRESSIVE MULTIPLE SCLEROSIS [None]
  - DISTURBANCE IN ATTENTION [None]
  - FALL [None]
  - INSOMNIA [None]
  - DRUG INEFFECTIVE [None]
